FAERS Safety Report 4873955-9 (Version None)
Quarter: 2006Q1

REPORT INFORMATION
  Report Type: 
  Country: None (occurrence: None)
  Receive Date: 20060106
  Receipt Date: 20051227
  Transmission Date: 20060701
  Serious: Yes (Life-Threatening)
  Sender: FDA-Public Use
  Company Number: TR-JNJFOC-20051201338

PATIENT
  Age: 35 Year
  Sex: Female

DRUGS (2)
  1. RISPERDAL CONSTA [Suspect]
     Indication: SCHIZOPHRENIA
     Route: 030
     Dates: start: 20051114, end: 20051129
  2. RISPERDAL [Suspect]
     Indication: SCHIZOPHRENIA
     Route: 065
     Dates: start: 20051101, end: 20051130

REACTIONS (5)
  - BRADYCARDIA [None]
  - CARDIAC ARREST [None]
  - COMA [None]
  - HYPOTENSION [None]
  - HYPOXIC ENCEPHALOPATHY [None]
